FAERS Safety Report 5855105-5 (Version None)
Quarter: 2008Q3

REPORT INFORMATION
  Report Type: 
  Country: None (occurrence: None)
  Receive Date: 20080822
  Receipt Date: 20080714
  Transmission Date: 20090109
  Serious: No
  Sender: FDA-Public Use
  Company Number: US-ABBOTT-08P-163-0462884-00

PATIENT
  Sex: Male
  Weight: 136.2 kg

DRUGS (7)
  1. SYNTHROID [Suspect]
     Indication: THYROID DISORDER
     Route: 048
     Dates: start: 20070101, end: 20080401
  2. SYNTHROID [Suspect]
     Dates: start: 20080401
  3. CLONIDINE [Concomitant]
     Indication: HYPERTENSION
     Route: 048
     Dates: start: 19830101
  4. LISINOPRIL [Concomitant]
     Indication: HYPERTENSION
     Route: 048
     Dates: start: 19830101
  5. LANSOPRAZOLE [Concomitant]
     Indication: GASTROOESOPHAGEAL REFLUX DISEASE
     Route: 048
  6. TESTOSTERONE CIPIONATE [Concomitant]
     Indication: BLOOD TESTOSTERONE ABNORMAL
     Route: 050
     Dates: start: 19980101
  7. LIOTHYRONINE SODIUM [Concomitant]
     Indication: SUPPLEMENTATION THERAPY
     Route: 048
     Dates: start: 20080401

REACTIONS (1)
  - WEIGHT FLUCTUATION [None]
